FAERS Safety Report 22353046 (Version 3)
Quarter: 2023Q2

REPORT INFORMATION
  Report Type: Report from Study
  Country: US (occurrence: US)
  Receive Date: 20230523
  Receipt Date: 20230530
  Transmission Date: 20230721
  Serious: No
  Sender: FDA-Public Use
  Company Number: US-002147023-NVSC2023US116108

PATIENT
  Sex: Male

DRUGS (3)
  1. COSENTYX [Suspect]
     Active Substance: SECUKINUMAB
     Indication: Psoriasis
     Dosage: 300 MG, QMO
     Route: 058
  2. MOMETASONE [Suspect]
     Active Substance: MOMETASONE
     Indication: Psoriasis
     Dosage: 0.1 %
     Route: 061
  3. ALCOHOL [Suspect]
     Active Substance: ALCOHOL
     Indication: Psoriasis
     Dosage: UNK
     Route: 065

REACTIONS (7)
  - Skin lesion [Unknown]
  - Hepatic enzyme increased [Unknown]
  - Neoplasm skin [Unknown]
  - Macule [Unknown]
  - Melanocytic naevus [Unknown]
  - Psoriasis [Unknown]
  - Drug ineffective [Unknown]
